FAERS Safety Report 23848799 (Version 1)
Quarter: 2024Q2

REPORT INFORMATION
  Report Type: Spontaneous
  Country: US (occurrence: US)
  Receive Date: 20240513
  Receipt Date: 20240513
  Transmission Date: 20240716
  Serious: No
  Sender: FDA-Public Use
  Company Number: US-009507513-2404USA010981

PATIENT
  Sex: Male

DRUGS (1)
  1. KEYTRUDA [Suspect]
     Active Substance: PEMBROLIZUMAB
     Indication: Renal cell carcinoma
     Dosage: 400 MILLIGRAM, EVERY 6 WEEKS
     Route: 042
     Dates: start: 202309

REACTIONS (11)
  - Stomatitis [Unknown]
  - Chest pain [Recovered/Resolved]
  - Headache [Unknown]
  - Paraesthesia [Unknown]
  - Rash [Unknown]
  - Visual impairment [Unknown]
  - Feeling cold [Recovering/Resolving]
  - Peripheral coldness [Recovering/Resolving]
  - Frostbite [Unknown]
  - Fatigue [Unknown]
  - Chest pain [Recovered/Resolved]

NARRATIVE: CASE EVENT DATE: 20240101
